FAERS Safety Report 17021787 (Version 1)
Quarter: 2019Q4

REPORT INFORMATION
  Report Type: Spontaneous
  Country: US (occurrence: US)
  Receive Date: 20191112
  Receipt Date: 20191112
  Transmission Date: 20200122
  Serious: No
  Sender: FDA-Public Use
  Company Number: US-ELI_LILLY_AND_COMPANY-US201910010048

PATIENT
  Age: 55 Year
  Sex: Male

DRUGS (6)
  1. EMGALITY [Suspect]
     Active Substance: GALCANEZUMAB-GNLM
     Indication: MIGRAINE
     Dosage: 240 MG, SINGLE
     Route: 058
  2. ASPIRIN COMP [Concomitant]
     Indication: MIGRAINE
  3. ACETAMINOPHEN. [Concomitant]
     Active Substance: ACETAMINOPHEN
     Indication: MIGRAINE
  4. EMGALITY [Suspect]
     Active Substance: GALCANEZUMAB-GNLM
     Dosage: 120 MG, MONTHLY (1/M)
     Route: 058
  5. ELETRIPTAN. [Concomitant]
     Active Substance: ELETRIPTAN
     Indication: MIGRAINE
  6. SUMATRIPTAN. [Concomitant]
     Active Substance: SUMATRIPTAN
     Indication: MIGRAINE

REACTIONS (2)
  - Injection site pain [Unknown]
  - Injection site erythema [Unknown]
